FAERS Safety Report 24284628 (Version 2)
Quarter: 2024Q3

REPORT INFORMATION
  Report Type: Spontaneous
  Country: US (occurrence: US)
  Receive Date: 20240905
  Receipt Date: 20240920
  Transmission Date: 20241017
  Serious: Yes (Other)
  Sender: TEVA
  Company Number: US-TEVA-VS-3239299

PATIENT
  Age: 37 Year
  Sex: Female

DRUGS (9)
  1. TETRACYCLINE [Suspect]
     Active Substance: TETRACYCLINE
     Indication: Hidradenitis
     Route: 048
  2. ISOTRETINOIN [Suspect]
     Active Substance: ISOTRETINOIN
     Indication: Hidradenitis
     Route: 048
  3. DOXYCYCLINE [Suspect]
     Active Substance: DOXYCYCLINE\DOXYCYCLINE HYCLATE
     Indication: Hidradenitis
     Route: 048
  4. TRIAMCINOLONE [Concomitant]
     Active Substance: TRIAMCINOLONE
     Indication: Hidradenitis
     Route: 061
  5. SILVER SULFADIAZENE [Concomitant]
     Active Substance: SILVER SULFADIAZINE
     Indication: Hidradenitis
     Route: 061
  6. DAPSONE [Suspect]
     Active Substance: DAPSONE
     Indication: Hidradenitis
     Dosage: 100-150 MG/DAY
     Route: 048
  7. MINOCYCLINE [Suspect]
     Active Substance: MINOCYCLINE HYDROCHLORIDE
     Indication: Hidradenitis
     Route: 048
  8. MUPIROCIN [Concomitant]
     Active Substance: MUPIROCIN
     Indication: Hidradenitis
     Route: 061
  9. ADALIMUMAB [Concomitant]
     Active Substance: ADALIMUMAB
     Indication: Hidradenitis
     Route: 065

REACTIONS (3)
  - Nausea [Unknown]
  - Haemoglobin decreased [Unknown]
  - Treatment failure [Unknown]
